FAERS Safety Report 12872526 (Version 1)
Quarter: 2016Q4

REPORT INFORMATION
  Report Type: Spontaneous
  Country: ES (occurrence: ES)
  Receive Date: 20161021
  Receipt Date: 20161021
  Transmission Date: 20170207
  Serious: Yes (Other)
  Sender: FDA-Public Use
  Company Number: ES-ACCORD-045002

PATIENT
  Age: 52 Year
  Sex: Female

DRUGS (1)
  1. DOCETAXEL ACCORD [Suspect]
     Active Substance: DOCETAXEL
     Indication: BREAST CANCER
     Dosage: 172 MG, C/21 DAYS
     Route: 042
     Dates: start: 20160728, end: 20160728

REACTIONS (3)
  - Hypotension [Recovered/Resolved]
  - Back pain [Recovered/Resolved]
  - Sympathomimetic effect [Recovered/Resolved]

NARRATIVE: CASE EVENT DATE: 20160728
